FAERS Safety Report 4293212-1 (Version None)
Quarter: 2004Q1

REPORT INFORMATION
  Report Type: 
  Country: None (occurrence: None)
  Receive Date: 20040126
  Receipt Date: 20031105
  Transmission Date: 20041129
  Serious: No
  Sender: FDA-Public Use
  Company Number: USA031151850

PATIENT
  Age: 65 Year
  Sex: Female

DRUGS (1)
  1. FORTEO [Suspect]
     Indication: OSTEOPOROSIS
     Dates: start: 20031011

REACTIONS (5)
  - INJECTION SITE PAIN [None]
  - INJECTION SITE STINGING [None]
  - MUSCLE CRAMP [None]
  - MUSCLE TIGHTNESS [None]
  - PAIN IN EXTREMITY [None]
